FAERS Safety Report 12679494 (Version 1)
Quarter: 2016Q3

REPORT INFORMATION
  Report Type: Spontaneous
  Country: US (occurrence: US)
  Receive Date: 20160824
  Receipt Date: 20160824
  Transmission Date: 20161109
  Serious: Yes (Death, Other)
  Sender: FDA-Public Use
  Company Number: US-BRISTOL-MYERS SQUIBB COMPANY-BMS-2016-068078

PATIENT
  Sex: Male
  Weight: 84.36 kg

DRUGS (1)
  1. OPDIVO [Suspect]
     Active Substance: NIVOLUMAB
     Indication: BLADDER CANCER
     Dosage: 258 MG, Q2WK
     Route: 065
     Dates: start: 20160315, end: 20160802

REACTIONS (2)
  - Death [Fatal]
  - Product use issue [Unknown]
